FAERS Safety Report 19097307 (Version 1)
Quarter: 2021Q2

REPORT INFORMATION
  Report Type: Spontaneous
  Country: DE (occurrence: DE)
  Receive Date: 20210406
  Receipt Date: 20210406
  Transmission Date: 20210717
  Serious: Yes (Other)
  Sender: FDA-Public Use
  Company Number: DE-PFIZER INC-2021363922

PATIENT
  Age: 33 Year
  Sex: Female

DRUGS (7)
  1. CYCLOPHOSPHAMIDE. [Suspect]
     Active Substance: CYCLOPHOSPHAMIDE
     Indication: METASTATIC CHORIOCARCINOMA
     Dosage: 600 MG/M2, CYCLIC (DAY 8, INFUSION FOR 20 MINUTES)
     Route: 042
     Dates: start: 19890301
  2. METHOTREXATE SODIUM. [Suspect]
     Active Substance: METHOTREXATE SODIUM
     Indication: METASTATIC CHORIOCARCINOMA
     Dosage: 100 MG/M2, CYCLIC (DAY 1)
     Route: 040
     Dates: start: 19890222
  3. VINCRISTINE SULFATE. [Suspect]
     Active Substance: VINCRISTINE SULFATE
     Indication: METASTATIC CHORIOCARCINOMA
     Dosage: 1 MG/M2, CYCLIC (DAY 8)
     Route: 040
     Dates: start: 19890301
  4. ACTINOMYCIN D [Suspect]
     Active Substance: DACTINOMYCIN
     Indication: METASTATIC CHORIOCARCINOMA
     Dosage: 0.5 MG, CYCLIC (DAY 1 AND 2? )
     Route: 040
     Dates: start: 19890222
  5. METHOTREXATE SODIUM. [Suspect]
     Active Substance: METHOTREXATE SODIUM
     Dosage: 200 MG/M2, CYCLIC (DAY 1? FOR 12 HRS. IN 500 ML NACI SOL.)
     Route: 042
     Dates: start: 19890222
  6. CALCIUM FOLINATE [Suspect]
     Active Substance: LEUCOVORIN CALCIUM
     Indication: METASTATIC CHORIOCARCINOMA
     Dosage: 15 MG, EVERY 12 HOURS FOR TWO DAYS
     Route: 030
     Dates: start: 19890223
  7. ETOPOSIDE. [Suspect]
     Active Substance: ETOPOSIDE
     Indication: METASTATIC CHORIOCARCINOMA
     Dosage: 100 MG/M2, CYCLIC (DAY 1 AND 2? FOR 30 MIN. IN 200 ML NACI SOL.)
     Route: 042
     Dates: start: 19890222

REACTIONS (8)
  - Oral herpes [Unknown]
  - Vulvovaginal candidiasis [Unknown]
  - Nausea [Unknown]
  - Vomiting [Unknown]
  - Anaemia [Recovered/Resolved]
  - Anal abscess [Unknown]
  - Stomatitis [Unknown]
  - Leukopenia [Unknown]
